FAERS Safety Report 19163632 (Version 1)
Quarter: 2021Q2

REPORT INFORMATION
  Report Type: Spontaneous
  Country: US (occurrence: US)
  Receive Date: 20210421
  Receipt Date: 20210421
  Transmission Date: 20210717
  Serious: Yes (Other)
  Sender: FDA-Public Use
  Company Number: US-MACLEODS PHARMACEUTICALS US LTD-MAC2021030845

PATIENT

DRUGS (7)
  1. GANCICLOVIR. [Suspect]
     Active Substance: GANCICLOVIR
     Indication: RETINITIS VIRAL
  2. ACYCLOVIR. [Suspect]
     Active Substance: ACYCLOVIR
     Indication: OPHTHALMIC HERPES SIMPLEX
  3. TRIAMCINOLONE ACETONIDE. [Suspect]
     Active Substance: TRIAMCINOLONE ACETONIDE
     Indication: IRIDOCYCLITIS
     Dosage: 10 MILLIGRAM, SINGLE, AN ANTERIOR SUB?TENON INJECTION IN HER LEFT EYE
     Route: 031
  4. ACYCLOVIR. [Suspect]
     Active Substance: ACYCLOVIR
     Indication: NECROTISING RETINITIS
     Dosage: 800 MILLIGRAM, 5 TIMES DAILY
     Route: 065
  5. ACYCLOVIR. [Suspect]
     Active Substance: ACYCLOVIR
     Indication: RETINITIS VIRAL
  6. GANCICLOVIR. [Suspect]
     Active Substance: GANCICLOVIR
     Indication: OPHTHALMIC HERPES SIMPLEX
  7. GANCICLOVIR. [Suspect]
     Active Substance: GANCICLOVIR
     Indication: NECROTISING RETINITIS
     Dosage: UNK

REACTIONS (4)
  - Retinitis viral [Recovering/Resolving]
  - Necrotising retinitis [Recovering/Resolving]
  - Retinal vein occlusion [Recovering/Resolving]
  - Ophthalmic herpes simplex [Recovering/Resolving]
